FAERS Safety Report 7273142-3 (Version None)
Quarter: 2011Q1

REPORT INFORMATION
  Report Type: 
  Country: None (occurrence: None)
  Receive Date: 20110203
  Receipt Date: 20110125
  Transmission Date: 20110831
  Serious: Yes (Hospitalization)
  Sender: FDA-Public Use
  Company Number: JP-ASTRAZENECA-2010SE60722

PATIENT
  Age: 30943 Day
  Sex: Male

DRUGS (2)
  1. CASODEX [Suspect]
     Indication: PROSTATE CANCER
     Route: 048
     Dates: start: 20101101, end: 20101203
  2. LEUPLIN [Suspect]
     Dosage: 3.75 MG MONTHY; ONLY ONCE
     Route: 058
     Dates: start: 20101001, end: 20101101

REACTIONS (1)
  - MUSCULAR WEAKNESS [None]
